FAERS Safety Report 10722661 (Version 1)
Quarter: 2015Q1

REPORT INFORMATION
  Report Type: Report from Study
  Country: US (occurrence: US)
  Receive Date: 20150120
  Receipt Date: 20150120
  Transmission Date: 20150721
  Serious: Yes (Other)
  Sender: FDA-Public Use
  Company Number: US-AMGEN-USASL2015004879

PATIENT
  Age: 69 Year
  Sex: Female

DRUGS (1)
  1. ENBREL [Suspect]
     Active Substance: ETANERCEPT
     Indication: RHEUMATOID ARTHRITIS
     Dosage: UNK
     Route: 065
     Dates: start: 20130605, end: 2014

REACTIONS (5)
  - Cataract [Unknown]
  - Pain [Unknown]
  - Eye disorder [Not Recovered/Not Resolved]
  - Surgery [Unknown]
  - Blindness [Not Recovered/Not Resolved]
